FAERS Safety Report 9664190 (Version 1)
Quarter: 2013Q4

REPORT INFORMATION
  Report Type: Spontaneous
  Country: US (occurrence: None)
  Receive Date: 20131030
  Receipt Date: 20131030
  Transmission Date: 20140711
  Serious: No
  Sender: FDA-Public Use
  Company Number: None

PATIENT
  Age: 53 Year
  Sex: Male
  Weight: 65.5 kg

DRUGS (11)
  1. METHOTREXATE [Suspect]
     Indication: SARCOIDOSIS
     Dosage: METHOTREXATE 5 MG INJECTION SUBCUTANEOUS
     Route: 058
  2. ACETAMINOPHEN-HYDROCODONE ( ACETAMINOPHEN-HYDROCODONE 500 MG-5 MG ORAL TABLET) [Concomitant]
  3. CHOLECALCIFEROL ( CHOLECALCIFEROL 400 INTL UNITS ORAL TABLET) [Concomitant]
  4. CLOTRIMAZOLE ( CLOTRIMAZOLE 10 MG ORAL LOZENGE) [Concomitant]
  5. CYANOCOBALAMIN ( VITAMIN B12 1000 MCG ORAL TABLET) [Concomitant]
  6. LEUCOVORIN ( LEUCOVORIN 10 MG ORAL TABLET) [Concomitant]
  7. LISINOPRIL ( LISINOPRIL 20 MG ORAL TABLET) [Concomitant]
  8. LUBIPROSTONE ( AMITIZA 24 MCG ORAL CAPSULE) [Concomitant]
  9. METFORMIN ( GLUCOPHAGE XR 750 MG ORAL TABLET, EXTENDED RELEASE) [Concomitant]
  10. METHOTREXATE ( METHOTREXATE 25 MG/ML INJECTABLE SOLUTION) [Concomitant]
  11. METHYLPREDNISOLONE ( MEDROL 4 MG ORAL TABLET) [Concomitant]

REACTIONS (1)
  - Weight decreased [None]
